FAERS Safety Report 10913131 (Version 1)
Quarter: 2015Q1

REPORT INFORMATION
  Report Type: Spontaneous
  Country: US (occurrence: US)
  Receive Date: 20150313
  Receipt Date: 20150313
  Transmission Date: 20150721
  Serious: Yes (Other)
  Sender: FDA-Public Use
  Company Number: US-GLENMARK GENERICS (EUROPE) LTD-2015GMK014688

PATIENT
  Age: 93 Year
  Sex: Female

DRUGS (1)
  1. GABAPENTIN. [Suspect]
     Active Substance: GABAPENTIN
     Indication: COMPLEX PARTIAL SEIZURES
     Dosage: UNK

REACTIONS (2)
  - Acute kidney injury [Unknown]
  - Hallucination, visual [Recovered/Resolved]
